FAERS Safety Report 5053753-6 (Version None)
Quarter: 2006Q2

REPORT INFORMATION
  Report Type: 
  Country: None (occurrence: None)
  Receive Date: 20060612
  Receipt Date: 20060703
  Transmission Date: 20061013
  Serious: Yes (Other)
  Sender: FDA-Public Use
  Company Number: 2006082269

PATIENT

DRUGS (1)
  1. ZOXAN LP (DOXAZOSIN) [Suspect]

REACTIONS (1)
  - POLYNEUROPATHY [None]
